FAERS Safety Report 12562489 (Version 1)
Quarter: 2016Q3

REPORT INFORMATION
  Report Type: Spontaneous
  Country: FR (occurrence: FR)
  Receive Date: 20160715
  Receipt Date: 20160715
  Transmission Date: 20161109
  Serious: Yes (Other)
  Sender: FDA-Public Use
  Company Number: FR-LEO PHARMA-243074

PATIENT
  Age: 95 Year
  Sex: Male

DRUGS (1)
  1. PICATO [Suspect]
     Active Substance: INGENOL MEBUTATE
     Indication: ACTINIC KERATOSIS
     Route: 061
     Dates: start: 20160602, end: 20160602

REACTIONS (5)
  - Application site burn [Recovering/Resolving]
  - Incorrect drug administration duration [Unknown]
  - Drug administration error [Unknown]
  - Periorbital oedema [Unknown]
  - Application site swelling [Unknown]

NARRATIVE: CASE EVENT DATE: 20160603
